FAERS Safety Report 6906955-5 (Version None)
Quarter: 2010Q3

REPORT INFORMATION
  Report Type: 
  Country: None (occurrence: None)
  Receive Date: 20100804
  Receipt Date: 20080414
  Transmission Date: 20110219
  Serious: No
  Sender: FDA-Public Use
  Company Number: US-PFIZER INC-2008032872

PATIENT
  Sex: Male
  Weight: 113.4 kg

DRUGS (3)
  1. NARDIL [Suspect]
     Indication: DEPRESSION
     Dates: start: 20071001
  2. PRAVACHOL [Concomitant]
  3. ACETYLSALICYLIC ACID SRT [Concomitant]

REACTIONS (3)
  - BALANCE DISORDER [None]
  - SENSORY DISTURBANCE [None]
  - WRONG TECHNIQUE IN DRUG USAGE PROCESS [None]
